FAERS Safety Report 8610624-3 (Version None)
Quarter: 2012Q3

REPORT INFORMATION
  Report Type: 
  Country: None (occurrence: None)
  Receive Date: 20120423
  Receipt Date: 20100707
  Transmission Date: 20120928
  Serious: Yes (Other)
  Sender: FDA-Public Use
  Company Number: PHHY2010US44675

PATIENT
  Sex: Female

DRUGS (5)
  1. FEMARA [Suspect]
  2. PROZAC [Concomitant]
  3. XANAX [Concomitant]
  4. ARIMIDEX [Concomitant]
  5. MOBIC [Concomitant]

REACTIONS (10)
  - PAIN IN EXTREMITY [None]
  - SWELLING FACE [None]
  - DIZZINESS [None]
  - ANGINA PECTORIS [None]
  - ANXIETY [None]
  - BLOOD PRESSURE INCREASED [None]
  - EXTRASYSTOLES [None]
  - HEART RATE INCREASED [None]
  - BLOOD CHOLESTEROL INCREASED [None]
  - LOSS OF CONSCIOUSNESS [None]
